FAERS Safety Report 4267688-X (Version None)
Quarter: 2004Q1

REPORT INFORMATION
  Report Type: 
  Country: None (occurrence: None)
  Receive Date: 20040109
  Receipt Date: 20040105
  Transmission Date: 20041129
  Serious: Yes (Disabling)
  Sender: FDA-Public Use
  Company Number: PHFR2004GB00479

PATIENT
  Age: 8 Year
  Sex: Female

DRUGS (3)
  1. CYCLOSPORINE [Suspect]
     Indication: RENAL TRANSPLANT
  2. AZATHIOPRINE [Concomitant]
     Indication: TRANSPLANT
  3. PREDNISOLONE [Concomitant]
     Indication: TRANSPLANT

REACTIONS (3)
  - BLINDNESS CORTICAL [None]
  - RETINAL DYSTROPHY [None]
  - VISUAL ACUITY REDUCED [None]
